FAERS Safety Report 25384233 (Version 1)
Quarter: 2025Q2

REPORT INFORMATION
  Report Type: Spontaneous
  Country: US (occurrence: US)
  Receive Date: 20250602
  Receipt Date: 20250602
  Transmission Date: 20250717
  Serious: Yes (Other)
  Sender: BIOVITRUM
  Company Number: US-BIOVITRUM-2025-US-007604

PATIENT
  Age: 80 Year
  Sex: Female

DRUGS (4)
  1. DOPTELET [Suspect]
     Active Substance: AVATROMBOPAG MALEATE
     Indication: Immune thrombocytopenia
     Route: 048
     Dates: start: 202411
  2. NEXIUM [Suspect]
     Active Substance: ESOMEPRAZOLE MAGNESIUM
     Indication: Product used for unknown indication
  3. CVITAMINS [Concomitant]
     Indication: Product used for unknown indication
  4. SIMETHICONE (DIMETHICONE) [Concomitant]
     Active Substance: DIMETHICONE
     Indication: Product used for unknown indication

REACTIONS (6)
  - Abdominal pain upper [Unknown]
  - Road traffic accident [Unknown]
  - Altered visual depth perception [Not Recovered/Not Resolved]
  - Nephrolithiasis [Unknown]
  - Haemorrhage [Unknown]
  - Product administration error [Unknown]
